FAERS Safety Report 9199097 (Version 2)
Quarter: 2013Q2

REPORT INFORMATION
  Report Type: Spontaneous
  Country: US (occurrence: US)
  Receive Date: 20130329
  Receipt Date: 20130520
  Transmission Date: 20140414
  Serious: Yes (Life-Threatening, Hospitalization)
  Sender: FDA-Public Use
  Company Number: US-B.I. PHARMACEUTICALS,INC./RIDGEFIELD-2013-BI-07931BP

PATIENT
  Age: 73 Year
  Sex: Female
  Weight: 70 kg

DRUGS (7)
  1. PRADAXA [Suspect]
     Indication: ATRIAL FIBRILLATION
     Dosage: 300 MG
     Route: 048
     Dates: end: 2010
  2. PRADAXA [Suspect]
     Dosage: 300 MG
     Route: 048
     Dates: start: 2010, end: 2012
  3. PRADAXA [Suspect]
     Dosage: 300 MG
     Route: 048
     Dates: start: 2012, end: 201303
  4. PRADAXA [Suspect]
     Dosage: 300 MG
     Route: 048
     Dates: start: 201303
  5. ASPIRIN [Concomitant]
     Indication: CORONARY ARTERY DISEASE
     Dosage: 81 MG
  6. ASPIRIN [Concomitant]
     Indication: ATRIAL FIBRILLATION
  7. ANTIHYPERTENSIVE [Concomitant]

REACTIONS (4)
  - Acute myocardial infarction [Recovered/Resolved]
  - Bladder cancer [Recovered/Resolved]
  - Breast cancer [Recovered/Resolved]
  - Cardiac septal defect [Recovered/Resolved]
